FAERS Safety Report 5027981-X (Version None)
Quarter: 2006Q2

REPORT INFORMATION
  Report Type: 
  Country: None (occurrence: None)
  Receive Date: 20060612
  Receipt Date: 20060608
  Transmission Date: 20061013
  Serious: Yes (Other)
  Sender: FDA-Public Use
  Company Number: IBF20060006

PATIENT
  Age: 35 Year
  Sex: Male

DRUGS (3)
  1. IBUPROFEN [Suspect]
     Indication: EXCORIATION
     Dosage: 400 MG ONCE PO
     Route: 048
     Dates: start: 20020101, end: 20040101
  2. IBUPROFEN [Suspect]
     Indication: MUSCLE SPASMS
     Dosage: 400 MG ONCE PO
     Route: 048
     Dates: start: 20020101, end: 20040101
  3. TETANUS TOXOID [Concomitant]

REACTIONS (10)
  - CHOLESTASIS [None]
  - HAEMOGLOBIN DECREASED [None]
  - HEPATIC NECROSIS [None]
  - HEPATIC STEATOSIS [None]
  - HEPATOTOXICITY [None]
  - PRURITUS GENERALISED [None]
  - RASH MACULO-PAPULAR [None]
  - SCRATCH [None]
  - SKIN HYPERPIGMENTATION [None]
  - WHITE BLOOD CELL COUNT INCREASED [None]
